FAERS Safety Report 11445834 (Version 1)
Quarter: 2015Q3

REPORT INFORMATION
  Report Type: Spontaneous
  Country: US (occurrence: US)
  Receive Date: 20150831
  Receipt Date: 20150831
  Transmission Date: 20151125
  Serious: No
  Sender: FDA-Public Use
  Company Number: US-ELI_LILLY_AND_COMPANY-US200712003529

PATIENT
  Age: 39 Year
  Sex: Female

DRUGS (9)
  1. CYMBALTA [Suspect]
     Active Substance: DULOXETINE HYDROCHLORIDE
     Dosage: 30 MG, UNK
     Dates: start: 20080730, end: 20080807
  2. LANTUS [Concomitant]
     Active Substance: INSULIN GLARGINE
  3. CYMBALTA [Suspect]
     Active Substance: DULOXETINE HYDROCHLORIDE
     Dosage: 60 MG, UNK
     Dates: start: 200712
  4. LEVOXYL [Concomitant]
     Active Substance: LEVOTHYROXINE SODIUM
  5. FLUOXETINE [Concomitant]
     Active Substance: FLUOXETINE\FLUOXETINE HYDROCHLORIDE
     Dosage: 10 MG, UNK
  6. CYMBALTA [Suspect]
     Active Substance: DULOXETINE HYDROCHLORIDE
     Indication: DEPRESSION
     Dosage: 30 MG, UNK
     Dates: start: 200709
  7. CYMBALTA [Suspect]
     Active Substance: DULOXETINE HYDROCHLORIDE
     Dosage: 90 MG, UNK
     Dates: start: 20071213
  8. CYMBALTA [Suspect]
     Active Substance: DULOXETINE HYDROCHLORIDE
     Dosage: 60 MG, UNK
  9. HUMALOG [Concomitant]
     Active Substance: INSULIN LISPRO

REACTIONS (50)
  - Presyncope [Unknown]
  - Nausea [Recovered/Resolved]
  - Dizziness [Recovering/Resolving]
  - Speech disorder [Recovered/Resolved]
  - Terminal insomnia [Recovered/Resolved]
  - Vaginal haemorrhage [Recovered/Resolved]
  - Feeling hot [Not Recovered/Not Resolved]
  - Confusional state [Not Recovered/Not Resolved]
  - Somnolence [Recovered/Resolved]
  - Insomnia [Recovered/Resolved]
  - Hyperhidrosis [Recovered/Resolved]
  - Fatigue [Recovered/Resolved]
  - Panic attack [Recovered/Resolved]
  - Thinking abnormal [Not Recovered/Not Resolved]
  - Crying [Not Recovered/Not Resolved]
  - Blood cholesterol increased [Recovered/Resolved]
  - Libido decreased [Not Recovered/Not Resolved]
  - Drug withdrawal syndrome [Not Recovered/Not Resolved]
  - Weight increased [Not Recovered/Not Resolved]
  - Head discomfort [Not Recovered/Not Resolved]
  - Tremor [Not Recovered/Not Resolved]
  - Feeling abnormal [Not Recovered/Not Resolved]
  - Vision blurred [Not Recovered/Not Resolved]
  - Depression [Not Recovered/Not Resolved]
  - Hyperacusis [Not Recovered/Not Resolved]
  - Anxiety [Recovering/Resolving]
  - Restlessness [Recovering/Resolving]
  - Feeling abnormal [Recovering/Resolving]
  - Crying [Recovering/Resolving]
  - Glycosylated haemoglobin increased [Recovering/Resolving]
  - Blood glucose decreased [Not Recovered/Not Resolved]
  - Feeling cold [Not Recovered/Not Resolved]
  - Photophobia [Not Recovered/Not Resolved]
  - Nausea [Not Recovered/Not Resolved]
  - Depression [Recovering/Resolving]
  - Anger [Recovering/Resolving]
  - Seborrhoea [Unknown]
  - Bone pain [Recovering/Resolving]
  - Blood glucose decreased [Unknown]
  - Dizziness [Not Recovered/Not Resolved]
  - Paraesthesia [Not Recovered/Not Resolved]
  - Nervousness [Not Recovered/Not Resolved]
  - Insomnia [Not Recovered/Not Resolved]
  - Fall [Not Recovered/Not Resolved]
  - Panic attack [Recovering/Resolving]
  - Asthenia [Recovered/Resolved]
  - Blood pressure increased [Recovered/Resolved]
  - Headache [Recovered/Resolved]
  - Memory impairment [Unknown]
  - Tinnitus [Not Recovered/Not Resolved]

NARRATIVE: CASE EVENT DATE: 200708
